FAERS Safety Report 6500253-X (Version None)
Quarter: 2009Q4

REPORT INFORMATION
  Report Type: 
  Country: None (occurrence: None)
  Receive Date: 20091215
  Receipt Date: 20091215
  Transmission Date: 20100525
  Serious: No
  Sender: FDA-Public Use
  Company Number: None

PATIENT
  Sex: Male
  Weight: 74.8435 kg

DRUGS (1)
  1. APRISO [Suspect]
     Indication: COLITIS ULCERATIVE
     Dosage: 4 CAPSULE ONCE DAILY

REACTIONS (4)
  - ABDOMINAL PAIN UPPER [None]
  - EATING DISORDER [None]
  - VOMITING [None]
  - WEIGHT DECREASED [None]
